FAERS Safety Report 6772628-5 (Version None)
Quarter: 2010Q2

REPORT INFORMATION
  Report Type: 
  Country: None (occurrence: None)
  Receive Date: 20100616
  Receipt Date: 20091001
  Transmission Date: 20101027
  Serious: No
  Sender: FDA-Public Use
  Company Number: US-ASTRAZENECA-2009SE17127

PATIENT
  Age: 72 Year
  Sex: Female
  Weight: 55.3 kg

DRUGS (6)
  1. PULMICORT RESPULES [Suspect]
     Indication: CHRONIC OBSTRUCTIVE PULMONARY DISEASE
     Dosage: 0.5 MG 1-2 TIMES PER DAY VIA NEBULIZER
     Route: 055
     Dates: start: 20090601
  2. ALBUTEROL [Concomitant]
  3. COMBIVENT [Concomitant]
  4. FUROSEMIDE [Concomitant]
  5. DILTIAZEM [Concomitant]
  6. SPIRONOLACTONE [Concomitant]

REACTIONS (1)
  - GLOSSODYNIA [None]
